FAERS Safety Report 20134225 (Version 2)
Quarter: 2022Q1

REPORT INFORMATION
  Report Type: Spontaneous
  Country: DE (occurrence: DE)
  Receive Date: 20211201
  Receipt Date: 20220118
  Transmission Date: 20220423
  Serious: Yes (Hospitalization)
  Sender: FDA-Public Use
  Company Number: DE-NOVARTISPH-NVSC2021DE272128

PATIENT
  Sex: Female

DRUGS (12)
  1. BEOVU [Suspect]
     Active Substance: BROLUCIZUMAB-DBLL
     Indication: Neovascular age-related macular degeneration
     Dosage: 0.05 ML= 6 MG (INJECTION LEFT EYE)
     Route: 031
     Dates: start: 20200804, end: 20200804
  2. BEOVU [Suspect]
     Active Substance: BROLUCIZUMAB-DBLL
     Dosage: 0.05 ML= 6 MG (INJECTION LEFT EYE)
     Route: 031
     Dates: start: 20200901, end: 20200901
  3. BEOVU [Suspect]
     Active Substance: BROLUCIZUMAB-DBLL
     Dosage: 0.05 ML= 6 MG (INJECTION LEFT EYE)
     Route: 031
     Dates: start: 20200930, end: 20200930
  4. BEOVU [Suspect]
     Active Substance: BROLUCIZUMAB-DBLL
     Dosage: 0.05 ML= 6 MG (INJECTION LEFT EYE)
     Route: 031
     Dates: start: 20201125, end: 20201125
  5. BEOVU [Suspect]
     Active Substance: BROLUCIZUMAB-DBLL
     Dosage: 0.05 ML= 6 MG (INJECTION LEFT EYE)
     Route: 031
     Dates: start: 20210120, end: 20210120
  6. BEOVU [Suspect]
     Active Substance: BROLUCIZUMAB-DBLL
     Dosage: 0.05 ML= 6 MG (INJECTION LEFT EYE)
     Route: 031
     Dates: start: 20210413, end: 20210413
  7. BEOVU [Suspect]
     Active Substance: BROLUCIZUMAB-DBLL
     Dosage: 0.05 ML= 6 MG (INJECTION LEFT EYE)
     Route: 031
     Dates: start: 20210615, end: 20210615
  8. BEOVU [Suspect]
     Active Substance: BROLUCIZUMAB-DBLL
     Dosage: 0.05 ML= 6 MG (INJECTION LEFT EYE)
     Route: 031
     Dates: start: 20210809, end: 20210809
  9. BEOVU [Suspect]
     Active Substance: BROLUCIZUMAB-DBLL
     Dosage: 0.05 ML= 6 MG (INJECTION LEFT EYE)
     Route: 031
     Dates: start: 20211013
  10. BISOPROLOL FUMARATE [Concomitant]
     Active Substance: BISOPROLOL FUMARATE
     Indication: Product used for unknown indication
     Dosage: UNK
     Route: 065
  11. RAMIPRIL [Concomitant]
     Active Substance: RAMIPRIL
     Indication: Product used for unknown indication
     Dosage: UNK
     Route: 065
  12. FLUTICASONE PROPIONATE\SALMETEROL XINAFOATE [Concomitant]
     Active Substance: FLUTICASONE PROPIONATE\SALMETEROL XINAFOATE
     Indication: Product used for unknown indication
     Dosage: VIANI FORTE
     Route: 065

REACTIONS (2)
  - Deafness [Recovering/Resolving]
  - Hypertension [Unknown]

NARRATIVE: CASE EVENT DATE: 20210301
